FAERS Safety Report 11349927 (Version 2)
Quarter: 2015Q3

REPORT INFORMATION
  Report Type: Report from Study
  Country: US (occurrence: US)
  Receive Date: 20150807
  Receipt Date: 20150811
  Transmission Date: 20151125
  Serious: Yes (Other)
  Sender: FDA-Public Use
  Company Number: PHHY2014US111824

PATIENT
  Age: 39 Year
  Sex: Male

DRUGS (1)
  1. GILENYA [Suspect]
     Active Substance: FINGOLIMOD HYDROCHLORIDE
     Indication: MULTIPLE SCLEROSIS
     Route: 048

REACTIONS (7)
  - Bronchitis [Recovered/Resolved]
  - Haemoglobin decreased [Recovered/Resolved]
  - Gastric ulcer haemorrhage [Recovered/Resolved]
  - Blood urea increased [Unknown]
  - Lymphocyte count decreased [Unknown]
  - White blood cell count decreased [Unknown]
  - Hepatic enzyme increased [Recovered/Resolved]

NARRATIVE: CASE EVENT DATE: 20130626
